FAERS Safety Report 4692946-4 (Version None)
Quarter: 2005Q2

REPORT INFORMATION
  Report Type: 
  Country: None (occurrence: None)
  Receive Date: 20050615
  Receipt Date: 20050526
  Transmission Date: 20051028
  Serious: Yes (Hospitalization, Disabling, Other)
  Sender: FDA-Public Use
  Company Number: USA050290369

PATIENT
  Sex: Female

DRUGS (10)
  1. EVISTA [Suspect]
     Indication: OSTEOPOROSIS
     Dosage: 60 MG/1 DAY
     Dates: start: 20010213
  2. CALCIUM GLUCONATE [Concomitant]
  3. COREG [Concomitant]
  4. ATENOLOL [Concomitant]
  5. MAGNESIUM OXIDE [Concomitant]
  6. MULTIVITAMINS NOS (MULTIVITAMINS NOS) [Concomitant]
  7. OS-CAL [Concomitant]
  8. VITAMIN E [Concomitant]
  9. ZESTRIL [Concomitant]
  10. ALLEGRA [Concomitant]

REACTIONS (19)
  - AMNESIA [None]
  - AORTIC VALVE CALCIFICATION [None]
  - BLOOD ALKALINE PHOSPHATASE INCREASED [None]
  - BLOOD CHOLESTEROL INCREASED [None]
  - BLOOD GLUCOSE INCREASED [None]
  - BLOOD POTASSIUM INCREASED [None]
  - BLOOD PRESSURE SYSTOLIC INCREASED [None]
  - BLOOD TRIGLYCERIDES INCREASED [None]
  - BUTTOCK PAIN [None]
  - CEREBROVASCULAR ACCIDENT [None]
  - HYPERTENSION [None]
  - HYPOAESTHESIA [None]
  - MITRAL VALVE INCOMPETENCE [None]
  - NERVE ROOT COMPRESSION [None]
  - OEDEMA [None]
  - PROTEIN TOTAL DECREASED [None]
  - RED CELL DISTRIBUTION WIDTH INCREASED [None]
  - TRANSIENT ISCHAEMIC ATTACK [None]
  - TRICUSPID VALVE INCOMPETENCE [None]
